FAERS Safety Report 21630858 (Version 1)
Quarter: 2022Q4

REPORT INFORMATION
  Report Type: Report from Study
  Country: US (occurrence: US)
  Receive Date: 20221123
  Receipt Date: 20221123
  Transmission Date: 20230113
  Serious: No
  Sender: FDA-Public Use
  Company Number: US-ABBVIE-21K-163-4107062-00

PATIENT
  Age: 64 Year
  Sex: Female

DRUGS (4)
  1. HUMIRA [Suspect]
     Active Substance: ADALIMUMAB
     Indication: Crohn^s disease
     Dosage: TIME INTERVAL: 1 TOTAL: DAY 1
     Route: 058
     Dates: start: 20210924, end: 20210924
  2. HUMIRA [Suspect]
     Active Substance: ADALIMUMAB
     Dosage: TIME INTERVAL: 1 TOTAL: DAY 15
     Route: 058
     Dates: start: 20211008, end: 20211008
  3. MUCINEX [Concomitant]
     Active Substance: GUAIFENESIN
     Indication: Product used for unknown indication
  4. ALLEGRA [Concomitant]
     Active Substance: FEXOFENADINE HYDROCHLORIDE
     Indication: Product used for unknown indication

REACTIONS (19)
  - Chest discomfort [Unknown]
  - Fatigue [Not Recovered/Not Resolved]
  - Decreased appetite [Recovered/Resolved]
  - Tendonitis [Unknown]
  - Stress fracture [Recovered/Resolved]
  - Paranasal sinus inflammation [Recovering/Resolving]
  - Musculoskeletal stiffness [Unknown]
  - Insomnia [Recovered/Resolved]
  - Abdominal distension [Recovered/Resolved]
  - Flatulence [Not Recovered/Not Resolved]
  - Abdominal pain [Recovered/Resolved]
  - Diarrhoea [Recovered/Resolved]
  - Arthralgia [Recovering/Resolving]
  - Back pain [Unknown]
  - Bone pain [Unknown]
  - Pulmonary mass [Unknown]
  - Rib fracture [Recovering/Resolving]
  - Pulmonary granuloma [Unknown]
  - Calcinosis [Unknown]

NARRATIVE: CASE EVENT DATE: 20210901
